FAERS Safety Report 12713685 (Version 2)
Quarter: 2016Q4

REPORT INFORMATION
  Report Type: Spontaneous
  Country: US (occurrence: US)
  Receive Date: 20160904
  Receipt Date: 20161215
  Transmission Date: 20170207
  Serious: Yes (Other)
  Sender: FDA-Public Use
  Company Number: US-AMGEN-USASP2016116091

PATIENT

DRUGS (5)
  1. NEULASTA [Suspect]
     Active Substance: PEGFILGRASTIM
     Indication: PRODUCT USED FOR UNKNOWN INDICATION
     Dosage: UNK
     Route: 065
     Dates: start: 20160627
  2. ADVIL [Suspect]
     Active Substance: IBUPROFEN
     Indication: CHEST PAIN
  3. ADVIL [Suspect]
     Active Substance: IBUPROFEN
     Indication: BONE PAIN
     Dosage: UNK
     Route: 065
  4. TAXOTERE [Concomitant]
     Active Substance: DOCETAXEL
     Dosage: UNK
  5. CYTOXAN [Concomitant]
     Active Substance: CYCLOPHOSPHAMIDE
     Dosage: UNK

REACTIONS (12)
  - Chromaturia [Unknown]
  - Bone pain [Recovered/Resolved]
  - Diarrhoea [Recovered/Resolved]
  - Abdominal pain [Unknown]
  - Fear of death [Unknown]
  - Seborrhoea [Not Recovered/Not Resolved]
  - Insomnia [Recovered/Resolved]
  - Haemorrhoids [Unknown]
  - Nausea [Unknown]
  - Haemorrhage [Unknown]
  - Constipation [Unknown]
  - Chest pain [Recovered/Resolved]

NARRATIVE: CASE EVENT DATE: 201607
